FAERS Safety Report 17999529 (Version 1)
Quarter: 2020Q3

REPORT INFORMATION
  Report Type: Spontaneous
  Country: US (occurrence: US)
  Receive Date: 20200709
  Receipt Date: 20200709
  Transmission Date: 20201103
  Serious: Yes (Hospitalization)
  Sender: FDA-Public Use
  Company Number: None

PATIENT
  Age: 62 Year
  Sex: Male

DRUGS (12)
  1. ATORVASTATIN [Suspect]
     Active Substance: ATORVASTATIN
  2. CAPCITABINE 500MG [Suspect]
     Active Substance: CAPECITABINE
     Indication: COLON CANCER
     Route: 048
     Dates: start: 20200325, end: 20200630
  3. ALEVE [Suspect]
     Active Substance: NAPROXEN SODIUM
  4. ASTELIN [Suspect]
     Active Substance: AZELASTINE HYDROCHLORIDE
  5. ESCITALOPRAM [Suspect]
     Active Substance: ESCITALOPRAM OXALATE
  6. OXYCODONE [Suspect]
     Active Substance: OXYCODONE
  7. NASONEX [Suspect]
     Active Substance: MOMETASONE FUROATE
  8. SAW PALMETTO [Suspect]
     Active Substance: HERBALS\SAW PALMETTO
  9. FISH OIL [Suspect]
     Active Substance: FISH OIL
  10. GABAPENTIN. [Suspect]
     Active Substance: GABAPENTIN
  11. VITAMIN D3 [Suspect]
     Active Substance: CHOLECALCIFEROL
  12. THERAGRAN [Suspect]
     Active Substance: VITAMINS

REACTIONS (8)
  - Nasopharyngitis [None]
  - Tunnel vision [None]
  - Fall [None]
  - Anaemia [None]
  - Dizziness [None]
  - Diarrhoea [None]
  - Abdominal discomfort [None]
  - Dehydration [None]

NARRATIVE: CASE EVENT DATE: 20200630
